FAERS Safety Report 26190522 (Version 1)
Quarter: 2025Q4

REPORT INFORMATION
  Report Type: Spontaneous
  Country: US (occurrence: None)
  Receive Date: 20251222
  Receipt Date: 20251222
  Transmission Date: 20260118
  Serious: Yes (Hospitalization)
  Sender: FDA-CTU
  Company Number: None

PATIENT
  Age: 76 Year
  Sex: Female
  Weight: 50.1 kg

DRUGS (12)
  1. KISQALI [Suspect]
     Active Substance: RIBOCICLIB SUCCINATE
     Indication: Breast cancer
     Dosage: 600 MG DAILY ON DAYS 1-21 ORAL
     Route: 048
     Dates: start: 20250813, end: 20251216
  2. Centrum Silver 50+ Tablet [Concomitant]
  3. ELIQUIS [Concomitant]
     Active Substance: APIXABAN
  4. metoprolol ER Succinate 25mg Tablet [Concomitant]
  5. PIOGLITAZONE [Concomitant]
     Active Substance: PIOGLITAZONE
  6. LETROZOLE [Concomitant]
     Active Substance: LETROZOLE
  7. ondansetron 8mg Tablet [Concomitant]
  8. glimepiride 4mg Tablet [Concomitant]
  9. ATORVASTATIN [Concomitant]
     Active Substance: ATORVASTATIN
  10. LANTUS SOLOSTAR [Concomitant]
     Active Substance: INSULIN GLARGINE
  11. midodrine 5mg Tablet [Concomitant]
  12. magnesium OTC tablet [Concomitant]

REACTIONS (1)
  - Pulmonary oedema [None]

NARRATIVE: CASE EVENT DATE: 20251216
